FAERS Safety Report 17973638 (Version 2)
Quarter: 2020Q3

REPORT INFORMATION
  Report Type: Spontaneous
  Country: IT (occurrence: IT)
  Receive Date: 20200702
  Receipt Date: 20200706
  Transmission Date: 20201103
  Serious: Yes (Hospitalization)
  Sender: FDA-Public Use
  Company Number: NVSC2020IT181566

PATIENT
  Age: 67 Year
  Sex: Male

DRUGS (2)
  1. ILARIS [Suspect]
     Active Substance: CANAKINUMAB
     Indication: PNEUMONIA
  2. ILARIS [Suspect]
     Active Substance: CANAKINUMAB
     Indication: COVID-19
     Dosage: 300 MG, TOTAL
     Route: 058
     Dates: start: 20200327, end: 20200327

REACTIONS (2)
  - Off label use [Recovering/Resolving]
  - Bronchopulmonary aspergillosis [Recovering/Resolving]

NARRATIVE: CASE EVENT DATE: 20200327
